FAERS Safety Report 10705685 (Version 1)
Quarter: 2015Q1

REPORT INFORMATION
  Report Type: Spontaneous
  Country: US (occurrence: US)
  Receive Date: 20150112
  Receipt Date: 20150112
  Transmission Date: 20150721
  Serious: Yes (Hospitalization)
  Sender: FDA-Public Use
  Company Number: US-ACTELION-A-US2014-110594

PATIENT
  Age: 69 Year
  Sex: Male

DRUGS (12)
  1. BUPROPION [Concomitant]
     Active Substance: BUPROPION
  2. ALBUTEROL. [Concomitant]
     Active Substance: ALBUTEROL
  3. OPSUMIT [Suspect]
     Active Substance: MACITENTAN
     Indication: PULMONARY ARTERIAL HYPERTENSION
     Dosage: 10 MG, UNK
     Route: 048
     Dates: start: 20141203
  4. OMEPRAZOLE. [Concomitant]
     Active Substance: OMEPRAZOLE
  5. HYDROCODONE/APAP [Concomitant]
     Active Substance: ACETAMINOPHEN\HYDROCODONE
  6. SILDENAFIL. [Concomitant]
     Active Substance: SILDENAFIL
  7. LOSARTAN [Concomitant]
     Active Substance: LOSARTAN
  8. TAMSULOSIN [Concomitant]
     Active Substance: TAMSULOSIN
  9. NITROFURANTOIN. [Concomitant]
     Active Substance: NITROFURANTOIN
  10. MAGNESIUM OXIDE. [Concomitant]
     Active Substance: MAGNESIUM OXIDE
  11. ADVAIR HFA [Concomitant]
     Active Substance: FLUTICASONE PROPIONATE\SALMETEROL XINAFOATE
  12. QUETIAPINE [Concomitant]
     Active Substance: QUETIAPINE

REACTIONS (2)
  - Prostatic disorder [Not Recovered/Not Resolved]
  - Prostatic operation [Unknown]

NARRATIVE: CASE EVENT DATE: 20141205
